FAERS Safety Report 6255526-5 (Version None)
Quarter: 2009Q2

REPORT INFORMATION
  Report Type: 
  Country: None (occurrence: None)
  Receive Date: 20090630
  Receipt Date: 20090522
  Transmission Date: 20091009
  Serious: Yes (Other)
  Sender: FDA-Public Use
  Company Number: 2009EU002180

PATIENT
  Sex: Male
  Weight: 2.8 kg

DRUGS (8)
  1. TACROLIMUS [Suspect]
     Dosage: 4 MG, TRANSPLACENTAL
     Route: 064
  2. MYCOPHENOLATE MOFETIL [Suspect]
     Dosage: 500 MG, UID/QD, TRANSPLACENTAL
     Route: 064
  3. PREDNISONE TAB [Concomitant]
  4. ... [Concomitant]
  5. ... [Concomitant]
  6. ... [Concomitant]
  7. ... [Concomitant]
  8. ... [Concomitant]

REACTIONS (5)
  - CAESAREAN SECTION [None]
  - CHOROIDAL COLOBOMA [None]
  - CYSTIC EYEBALL, CONGENITAL [None]
  - IRIS DISORDER [None]
  - MATERNAL DRUGS AFFECTING FOETUS [None]
